FAERS Safety Report 18861586 (Version 1)
Quarter: 2021Q1

REPORT INFORMATION
  Report Type: Spontaneous
  Country: CN (occurrence: CN)
  Receive Date: 20210208
  Receipt Date: 20210208
  Transmission Date: 20210420
  Serious: Yes (Hospitalization)
  Sender: FDA-Public Use
  Company Number: NVSC2021CN025754

PATIENT
  Age: 81 Year
  Sex: Female

DRUGS (6)
  1. MANNITOL. [Concomitant]
     Active Substance: MANNITOL
     Indication: PRODUCT USED FOR UNKNOWN INDICATION
     Dosage: UNK UNK, Q12H
     Route: 042
  2. BETAHISTINE MESILATE [Concomitant]
     Active Substance: BETAHISTINE MESILATE
     Indication: VERTEBROBASILAR INSUFFICIENCY
     Dosage: UNK
     Route: 065
  3. BETAMETHASONE. [Concomitant]
     Active Substance: BETAMETHASONE
     Indication: OEDEMA
     Dosage: 4 MG, QD
     Route: 042
  4. PANTOPRAZOLE SODIUM ANHYDROUS [Concomitant]
     Active Substance: PANTOPRAZOLE SODIUM ANHYDROUS
     Indication: ABDOMINAL DISCOMFORT
     Dosage: UNK UNK, BID
     Route: 065
  5. CARBAMAZEPINE. [Suspect]
     Active Substance: CARBAMAZEPINE
     Indication: VESTIBULAR PAROXYSMIA
     Dosage: 0.2 G, BID
     Route: 048
     Dates: start: 20210119, end: 20210120
  6. LACIDIPINE [Concomitant]
     Active Substance: LACIDIPINE
     Indication: BLOOD PRESSURE MEASUREMENT
     Dosage: 4 MG, QD
     Route: 065

REACTIONS (2)
  - Respiration abnormal [Recovering/Resolving]
  - Altered state of consciousness [Recovering/Resolving]

NARRATIVE: CASE EVENT DATE: 20210120
